FAERS Safety Report 6398551-6 (Version None)
Quarter: 2009Q4

REPORT INFORMATION
  Report Type: 
  Country: None (occurrence: None)
  Receive Date: 20091013
  Receipt Date: 20091001
  Transmission Date: 20100525
  Serious: Yes (Life-Threatening, Other)
  Sender: FDA-Public Use
  Company Number: PT-PFIZER INC-2009270563

PATIENT
  Age: 36 Year

DRUGS (18)
  1. SUNITINIB MALATE [Suspect]
     Indication: BREAST CANCER
     Dosage: 50 MG, 1X/DAY
     Route: 048
     Dates: start: 20090618, end: 20090701
  2. SUNITINIB MALATE [Suspect]
     Dosage: 37.5 MG, 1X/DAY
     Route: 048
     Dates: start: 20090709, end: 20090722
  3. SUNITINIB MALATE [Suspect]
     Dosage: 37.5 MG, 1X/DAY
     Route: 048
     Dates: start: 20090730, end: 20090812
  4. SUNITINIB MALATE [Suspect]
     Dosage: 37.5 MG, 1X/DAY
     Route: 048
     Dates: start: 20090820
  5. TAXOTERE [Suspect]
     Indication: BREAST CANCER
     Dosage: 75 MG/M2, UNK
     Route: 042
     Dates: start: 20090708, end: 20090708
  6. TAXOTERE [Suspect]
     Dosage: 75 MG/M2, UNK
     Route: 042
     Dates: start: 20090729, end: 20090729
  7. TAXOTERE [Suspect]
     Dosage: 75 MG/M2, UNK
     Route: 042
     Dates: start: 20090819, end: 20090819
  8. METOCLOPRAMIDE [Concomitant]
     Dosage: 10 MG, UNK
     Dates: start: 20090617
  9. LOPERAMIDE [Concomitant]
     Dosage: 2 MG, UNK
     Dates: start: 20090617
  10. PREDNISOLONE [Concomitant]
     Dosage: 50 MG, UNK
     Dates: start: 20090708
  11. AUGMENTIN [Concomitant]
     Dosage: 625 MG, UNK
     Dates: start: 20090715
  12. CIPROFLOXACIN [Concomitant]
     Dosage: 500 MG, UNK
     Dates: start: 20090705
  13. IBUPROFEN [Concomitant]
     Dosage: 600 MG, UNK
     Dates: start: 20090715
  14. PARACETAMOL [Concomitant]
     Dosage: 1 G, AS NEEDED
     Dates: start: 20090715
  15. MYCOSTATIN [Concomitant]
     Indication: MUCOSAL INFLAMMATION
     Dosage: 100000 IU, 4X/DAY
     Dates: start: 20090729
  16. HYDROCORTISONE [Concomitant]
     Dosage: 200 MG, UNK
  17. RANITIDINE [Concomitant]
     Dosage: 50 MG, UNK
  18. CLEMASTINE [Concomitant]
     Dosage: 1 MG/ML, 2X/DAY

REACTIONS (3)
  - DYSPNOEA [None]
  - FLUSHING [None]
  - OXYGEN SATURATION DECREASED [None]
